FAERS Safety Report 6687273-X (Version None)
Quarter: 2010Q2

REPORT INFORMATION
  Report Type: 
  Country: None (occurrence: None)
  Receive Date: 20100419
  Receipt Date: 20100408
  Transmission Date: 20101027
  Serious: Yes (Death)
  Sender: FDA-Public Use
  Company Number: US-BAXTER-2010BH007510

PATIENT
  Age: 63 Year
  Sex: Male

DRUGS (3)
  1. DIANEAL [Suspect]
     Indication: PERITONEAL DIALYSIS
     Route: 033
     Dates: end: 20100316
  2. DIANEAL [Suspect]
     Indication: PERITONEAL DIALYSIS
     Route: 033
     Dates: end: 20100316
  3. IMMUNOSUPPRESSIVE AGENTS [Concomitant]
     Indication: MYASTHENIA GRAVIS
     Route: 065

REACTIONS (5)
  - ASTHENIA [None]
  - BLOODY PERITONEAL EFFLUENT [None]
  - DUODENAL ULCER [None]
  - GASTROINTESTINAL HAEMORRHAGE [None]
  - MYASTHENIA GRAVIS [None]
